FAERS Safety Report 17743146 (Version 1)
Quarter: 2020Q2

REPORT INFORMATION
  Report Type: Spontaneous
  Country: FR (occurrence: FR)
  Receive Date: 20200505
  Receipt Date: 20200505
  Transmission Date: 20200714
  Serious: Yes (Hospitalization, Other)
  Sender: FDA-Public Use
  Company Number: FR-ASTRAZENECA-2020SE58645

PATIENT
  Age: 15 Year
  Sex: Female

DRUGS (2)
  1. XEROQUEL SR [Suspect]
     Active Substance: QUETIAPINE FUMARATE
     Indication: OFF LABEL USE
     Dosage: REDUCE
     Route: 048
     Dates: start: 20200427
  2. XEROQUEL SR [Suspect]
     Active Substance: QUETIAPINE FUMARATE
     Indication: OFF LABEL USE
     Dosage: TABLET SR
     Route: 048
     Dates: start: 202002

REACTIONS (3)
  - Off label use [Not Recovered/Not Resolved]
  - Neutropenia [Unknown]
  - Withdrawal syndrome [Unknown]
